FAERS Safety Report 6160224-2 (Version None)
Quarter: 2009Q2

REPORT INFORMATION
  Report Type: 
  Country: None (occurrence: None)
  Receive Date: 20090420
  Receipt Date: 20090414
  Transmission Date: 20091009
  Serious: Yes (Other)
  Sender: FDA-Public Use
  Company Number: B0566303A

PATIENT
  Sex: Male
  Weight: 57.4 kg

DRUGS (3)
  1. RELENZA [Suspect]
     Indication: INFLUENZA
     Dosage: 10MG TWICE PER DAY
     Route: 055
     Dates: start: 20090312, end: 20090314
  2. CALONAL [Concomitant]
     Indication: PYREXIA
     Route: 065
     Dates: start: 20090312, end: 20090314
  3. CHINESE MEDICINE [Concomitant]
     Indication: INFLUENZA
     Route: 048
     Dates: start: 20090312, end: 20090314

REACTIONS (4)
  - ABNORMAL BEHAVIOUR [None]
  - DELIRIUM [None]
  - SCRATCH [None]
  - STARING [None]
